FAERS Safety Report 7300802-8 (Version None)
Quarter: 2011Q1

REPORT INFORMATION
  Report Type: 
  Country: None (occurrence: None)
  Receive Date: 20110103
  Receipt Date: 20100528
  Transmission Date: 20110831
  Serious: Yes (Hospitalization)
  Sender: FDA-Public Use
  Company Number: US-004535

PATIENT
  Age: 70 Year
  Sex: Female

DRUGS (3)
  1. MULTIHANCE [Suspect]
     Indication: CARDIOMYOPATHY
     Dosage: 26ML ONCE INTRAVENOUS  (NOT OTHERWISE SPECIFIED)
     Route: 042
     Dates: start: 20100527, end: 20100527
  2. MULTIHANCE [Suspect]
     Indication: NUCLEAR MAGNETIC RESONANCE IMAGING
     Dosage: 26ML ONCE INTRAVENOUS  (NOT OTHERWISE SPECIFIED)
     Route: 042
     Dates: start: 20100527, end: 20100527
  3. MULTIHANCE [Suspect]
     Indication: HYPERTROPHIC CARDIOMYOPATHY
     Dosage: 26ML ONCE INTRAVENOUS  (NOT OTHERWISE SPECIFIED)
     Route: 042
     Dates: start: 20100527, end: 20100527

REACTIONS (1)
  - ANAPHYLACTIC REACTION [None]
